FAERS Safety Report 6011726-0 (Version None)
Quarter: 2008Q4

REPORT INFORMATION
  Report Type: 
  Country: None (occurrence: None)
  Receive Date: 20081218
  Receipt Date: 20081211
  Transmission Date: 20090506
  Serious: Yes (Life-Threatening)
  Sender: FDA-Public Use
  Company Number: JP-ELI_LILLY_AND_COMPANY-JP200811002811

PATIENT
  Sex: Male
  Weight: 50 kg

DRUGS (5)
  1. GEMZAR [Suspect]
     Indication: BILE DUCT CANCER STAGE IV
     Dosage: 390 MG, WEEKLY (1/W)
     Route: 042
     Dates: start: 20070424, end: 20070529
  2. GEMZAR [Suspect]
     Dosage: 1560 MG, WEEKLY (1/W)
     Route: 042
     Dates: start: 20070620, end: 20070620
  3. GEMZAR [Suspect]
     Dosage: 1500 MG, OTHER
     Route: 042
     Dates: start: 20070628, end: 20080820
  4. OMEPRAL [Concomitant]
     Indication: ULCER
     Dosage: 20 MG, DAILY (1/D)
     Route: 048
     Dates: start: 20070327, end: 20080409
  5. URSO 250 [Concomitant]
     Indication: BILE OUTPUT
     Dosage: 200 MG, 3/D
     Route: 048
     Dates: start: 20080317

REACTIONS (1)
  - ACUTE MYELOID LEUKAEMIA [None]
